FAERS Safety Report 25103364 (Version 1)
Quarter: 2025Q1

REPORT INFORMATION
  Report Type: Spontaneous
  Country: BG (occurrence: BG)
  Receive Date: 20250321
  Receipt Date: 20250321
  Transmission Date: 20250409
  Serious: Yes (Other)
  Sender: ALCON
  Company Number: BG-ALCON LABORATORIES-ALC2025BG001593

PATIENT

DRUGS (1)
  1. ALCAINE [Suspect]
     Active Substance: PROPARACAINE HYDROCHLORIDE
     Indication: Local anaesthesia
     Route: 047

REACTIONS (11)
  - Drug abuse [Unknown]
  - Cataract [Unknown]
  - Hypopyon [Unknown]
  - Persistent corneal epithelial defect [Unknown]
  - Blepharospasm [Unknown]
  - Eyelid oedema [Unknown]
  - Erythema of eyelid [Unknown]
  - Conjunctival oedema [Unknown]
  - Corneal infiltrates [Unknown]
  - Corneal oedema [Unknown]
  - Conjunctival hyperaemia [Unknown]
